FAERS Safety Report 5585465-4 (Version None)
Quarter: 2008Q1

REPORT INFORMATION
  Report Type: 
  Country: None (occurrence: None)
  Receive Date: 20080104
  Receipt Date: 20080104
  Transmission Date: 20080703
  Serious: Yes (Life-Threatening, Hospitalization, Disabling)
  Sender: FDA-Public Use
  Company Number: None

PATIENT
  Sex: Female
  Weight: 79.3795 kg

DRUGS (2)
  1. CYMBALTA [Suspect]
     Indication: DEPRESSION
     Dosage: 30MG  1XDAILY PO
     Route: 048
     Dates: start: 20070102, end: 20071231
  2. PHENTERMINE [Suspect]
     Indication: WEIGHT CONTROL
     Dosage: 15MG  2X DAILY  PO
     Route: 048
     Dates: start: 20070801, end: 20071224

REACTIONS (1)
  - SEROTONIN SYNDROME [None]
